FAERS Safety Report 18174682 (Version 5)
Quarter: 2023Q2

REPORT INFORMATION
  Report Type: Spontaneous
  Country: US (occurrence: US)
  Receive Date: 20200820
  Receipt Date: 20230419
  Transmission Date: 20230722
  Serious: Yes (Hospitalization, Other)
  Sender: FDA-Public Use
  Company Number: US-PFIZER INC-2020322402

PATIENT
  Age: 72 Year
  Sex: Male

DRUGS (20)
  1. INLYTA [Suspect]
     Active Substance: AXITINIB
     Indication: Renal cancer
     Dosage: 2 MG, 2X/DAY
     Route: 048
     Dates: start: 201905
  2. ALLOPURINOL [Concomitant]
     Active Substance: ALLOPURINOL
     Dosage: UNK
  3. AMOXICILLIN [Concomitant]
     Active Substance: AMOXICILLIN
     Dosage: UNK
  4. ATORVASTATIN [Concomitant]
     Active Substance: ATORVASTATIN
     Dosage: UNK
  5. AZELASTINE [Concomitant]
     Active Substance: AZELASTINE
     Dosage: UNK
  6. BENZONATATE [Concomitant]
     Active Substance: BENZONATATE
     Dosage: UNK
  7. CLOPIDOGREL [Concomitant]
     Active Substance: CLOPIDOGREL BISULFATE
     Dosage: UNK
  8. CLOTRIMAZOLE [Concomitant]
     Active Substance: CLOTRIMAZOLE
     Dosage: UNK
  9. DOXAZOSIN [Concomitant]
     Active Substance: DOXAZOSIN MESYLATE
     Dosage: UNK
  10. ALBUTEROL\IPRATROPIUM [Concomitant]
     Active Substance: ALBUTEROL\IPRATROPIUM
     Dosage: UNK
  11. ISOSORBIDE [Concomitant]
     Active Substance: ISOSORBIDE
     Dosage: UNK
  12. LISINOPRIL [Concomitant]
     Active Substance: LISINOPRIL
     Dosage: UNK
  13. LORATADINE [Concomitant]
     Active Substance: LORATADINE
     Dosage: UNK
  14. MONTELUKAST [Concomitant]
     Active Substance: MONTELUKAST SODIUM
     Dosage: UNK
  15. NYSTATIN [Concomitant]
     Active Substance: NYSTATIN
     Dosage: UNK
  16. PANTOPRAZOLE [Concomitant]
     Active Substance: PANTOPRAZOLE
     Dosage: UNK
  17. PREDNISONE [Concomitant]
     Active Substance: PREDNISONE
     Dosage: UNK
  18. CODEINE PHOSPHATE\PROMETHAZINE HYDROCHLORIDE [Concomitant]
     Active Substance: CODEINE PHOSPHATE\PROMETHAZINE HYDROCHLORIDE
     Dosage: UNK
  19. SYNTHROID [Concomitant]
     Active Substance: LEVOTHYROXINE SODIUM
     Dosage: UNK
  20. TRELEGY ELLIPTA [Concomitant]
     Active Substance: FLUTICASONE FUROATE\UMECLIDINIUM BROMIDE\VILANTEROL TRIFENATATE
     Dosage: UNK

REACTIONS (14)
  - Myocardial infarction [Unknown]
  - Dyspnoea [Unknown]
  - Cough [Unknown]
  - Swollen tongue [Unknown]
  - Stomatitis [Unknown]
  - Dry mouth [Not Recovered/Not Resolved]
  - Nausea [Unknown]
  - Vomiting [Not Recovered/Not Resolved]
  - Hypoaesthesia [Unknown]
  - Fatigue [Unknown]
  - Dysphonia [Unknown]
  - Vision blurred [Unknown]
  - Confusional state [Unknown]
  - Taste disorder [Unknown]

NARRATIVE: CASE EVENT DATE: 20200401
